FAERS Safety Report 25970936 (Version 1)
Quarter: 2025Q4

REPORT INFORMATION
  Report Type: Spontaneous
  Country: GB (occurrence: GB)
  Receive Date: 20251028
  Receipt Date: 20251028
  Transmission Date: 20260117
  Serious: Yes (Other)
  Sender: ARTHUR GROUP LLC
  Company Number: GB-ARTHUR-2025AGLIT00010

PATIENT
  Age: 49 Month

DRUGS (8)
  1. MELPHALAN [Suspect]
     Active Substance: MELPHALAN
     Indication: Congenital retinoblastoma
     Dosage: AT 10 MONTHS OF AGE (3,3,4)
     Route: 013
  2. MELPHALAN [Suspect]
     Active Substance: MELPHALAN
     Indication: Retinoblastoma
     Dosage: AT 42 MONTHS OF AGE (5,5,5)
     Route: 013
  3. MELPHALAN [Suspect]
     Active Substance: MELPHALAN
     Indication: Drug therapy
     Dosage: AT 49 MONTHS OF AGE (7.5,7.5,7.5)
     Route: 013
  4. TOPOTECAN [Suspect]
     Active Substance: TOPOTECAN HYDROCHLORIDE
     Indication: Congenital retinoblastoma
     Dosage: AT 10 MONTHS (0.3,0.3,0.3)
     Route: 013
  5. TOPOTECAN [Suspect]
     Active Substance: TOPOTECAN HYDROCHLORIDE
     Dosage: AT 42 MONTHS (1,1,1)
     Route: 013
  6. TOPOTECAN [Suspect]
     Active Substance: TOPOTECAN HYDROCHLORIDE
     Dosage: AT 49 MONTHS (1.5,1.5,1.5)
     Route: 013
  7. TOPOTECAN [Suspect]
     Active Substance: TOPOTECAN HYDROCHLORIDE
     Dosage: AT 60 MONTHS (1.5,1.5,1.5)
     Route: 013
  8. CARBOPLATIN [Suspect]
     Active Substance: CARBOPLATIN
     Indication: Congenital retinoblastoma
     Dosage: AT 60 MONTHS OF AGE (30,30,30)
     Route: 065

REACTIONS (4)
  - IIIrd nerve paralysis [Not Recovered/Not Resolved]
  - VIth nerve paralysis [Not Recovered/Not Resolved]
  - Product use in unapproved indication [Unknown]
  - Product use issue [Unknown]
